FAERS Safety Report 4281944-0 (Version None)
Quarter: 2004Q1

REPORT INFORMATION
  Report Type: 
  Country: None (occurrence: None)
  Receive Date: 20040128
  Receipt Date: 20040119
  Transmission Date: 20041129
  Serious: Yes (Hospitalization, Other)
  Sender: FDA-Public Use
  Company Number: 2004-01-1110

PATIENT
  Age: 65 Year
  Sex: Female

DRUGS (1)
  1. TEMODAL [Suspect]
     Indication: GLIOBLASTOMA MULTIFORME
     Dosage: ORAL
     Route: 048
     Dates: start: 20031101, end: 20031201

REACTIONS (5)
  - GLIOBLASTOMA MULTIFORME [None]
  - MALIGNANT NEOPLASM PROGRESSION [None]
  - MYOCARDITIS [None]
  - NEUTROPENIA [None]
  - SEPTIC SHOCK [None]
